FAERS Safety Report 22006949 (Version 1)
Quarter: 2023Q1

REPORT INFORMATION
  Report Type: Spontaneous
  Country: DE (occurrence: DE)
  Receive Date: 20230217
  Receipt Date: 20230217
  Transmission Date: 20230417
  Serious: Yes (Congenital Anomaly)
  Sender: FDA-Public Use
  Company Number: DE-EMBRYOTOX-202118503

PATIENT
  Sex: Male
  Weight: 3.61 kg

DRUGS (4)
  1. ESCITALOPRAM OXALATE [Suspect]
     Active Substance: ESCITALOPRAM OXALATE
     Indication: Exposure during pregnancy
     Dosage: 20 [MG/D (BIS 5) ]/ NO INTAKE FROM GW 8 UNTIL 27
     Route: 064
     Dates: start: 20210423, end: 20220208
  2. INDAPAMIDE [Suspect]
     Active Substance: INDAPAMIDE
     Indication: Exposure during pregnancy
     Dosage: 1.5 MG QD, 1.5 [MG/D ]
     Route: 064
     Dates: start: 20210423, end: 20210615
  3. CANDESARTAN [Suspect]
     Active Substance: CANDESARTAN
     Indication: Exposure during pregnancy
     Dosage: 16 MG, QD, 16 [MG/D ]
     Route: 064
     Dates: start: 20210423, end: 20210615
  4. ASPIRIN [Concomitant]
     Active Substance: ASPIRIN
     Indication: Exposure during pregnancy
     Dosage: 150 MG QD, 150 [MG/D (2X75) ]/ PROPHYLAXIS PRE-ECLAMPSIA
     Route: 064

REACTIONS (1)
  - Ventricular septal defect [Unknown]
